FAERS Safety Report 6461133-1 (Version None)
Quarter: 2009Q4

REPORT INFORMATION
  Report Type: 
  Country: None (occurrence: None)
  Receive Date: 20091123
  Receipt Date: 20091110
  Transmission Date: 20100525
  Serious: No
  Sender: FDA-Public Use
  Company Number: SPV1 2009-02252

PATIENT
  Age: 20 Year
  Sex: Male
  Weight: 77 kg

DRUGS (2)
  1. METHYLPHENIDATE HCL [Suspect]
     Dosage: 80 MG
  2. IBUPROFEN [Suspect]
     Dosage: 50000MG

REACTIONS (3)
  - INTENTIONAL OVERDOSE [None]
  - SUICIDE ATTEMPT [None]
  - VOMITING [None]
